FAERS Safety Report 21351756 (Version 3)
Quarter: 2022Q4

REPORT INFORMATION
  Report Type: Spontaneous
  Country: RU (occurrence: RU)
  Receive Date: 20220919
  Receipt Date: 20221216
  Transmission Date: 20230112
  Serious: Yes (Other)
  Sender: FDA-Public Use
  Company Number: RU-JNJFOC-20220937759

PATIENT
  Age: 48 Year
  Sex: Female

DRUGS (7)
  1. TRABECTEDIN [Suspect]
     Active Substance: TRABECTEDIN
     Indication: Liposarcoma
     Dosage: TOTAL DOSE GIVEN 2.55 MG
     Route: 041
     Dates: start: 202007, end: 20201005
  2. TRABECTEDIN [Suspect]
     Active Substance: TRABECTEDIN
     Route: 041
     Dates: start: 20201026
  3. TRABECTEDIN [Suspect]
     Active Substance: TRABECTEDIN
     Dosage: 9TH TO 26TH CYCLE
     Route: 041
     Dates: start: 20210310
  4. TRABECTEDIN [Suspect]
     Active Substance: TRABECTEDIN
     Dosage: 22ND CYCLE
     Route: 041
     Dates: start: 20211228
  5. ZOLEDRONIC ACID [Concomitant]
     Active Substance: ZOLEDRONIC ACID
     Dates: start: 20210507
  6. ZOLEDRONIC ACID [Concomitant]
     Active Substance: ZOLEDRONIC ACID
     Dates: start: 20210730
  7. ZOLEDRONIC ACID [Concomitant]
     Active Substance: ZOLEDRONIC ACID
     Dates: start: 20210830

REACTIONS (4)
  - Neutropenia [Recovering/Resolving]
  - Pneumonia [Recovering/Resolving]
  - Leukopenia [Recovering/Resolving]
  - Hepatic cytolysis [Recovering/Resolving]

NARRATIVE: CASE EVENT DATE: 20200101
